FAERS Safety Report 10166625 (Version 4)
Quarter: 2014Q3

REPORT INFORMATION
  Report Type: Spontaneous
  Country: FR (occurrence: FR)
  Receive Date: 20140512
  Receipt Date: 20140701
  Transmission Date: 20150326
  Serious: Yes (Hospitalization, Other)
  Sender: FDA-Public Use
  Company Number: FR-JNJFOC-20140504564

PATIENT
  Age: 72 Year
  Sex: Female
  Weight: 64 kg

DRUGS (13)
  1. FORLAX [Concomitant]
     Active Substance: POLYETHYLENE GLYCOL 4000
     Indication: PRODUCT USED FOR UNKNOWN INDICATION
     Route: 065
  2. XYZALL [Concomitant]
     Active Substance: LEVOCETIRIZINE DIHYDROCHLORIDE
     Indication: PRODUCT USED FOR UNKNOWN INDICATION
     Route: 065
  3. LEXOMIL [Concomitant]
     Active Substance: BROMAZEPAM
     Indication: STRESS
     Route: 065
  4. QUITAXON [Concomitant]
     Active Substance: DOXEPIN HYDROCHLORIDE
     Indication: PRODUCT USED FOR UNKNOWN INDICATION
     Route: 065
  5. TERCIAN [Concomitant]
     Active Substance: CYAMEMAZINE
     Indication: PRODUCT USED FOR UNKNOWN INDICATION
     Route: 065
  6. TRAMADOL/PARACETAMOL [Suspect]
     Active Substance: ACETAMINOPHEN\TRAMADOL
     Indication: ARTHRALGIA
     Route: 065
     Dates: start: 20140218, end: 20140220
  7. TRAMADOL/PARACETAMOL [Suspect]
     Active Substance: ACETAMINOPHEN\TRAMADOL
     Indication: MUSCULOSKELETAL PAIN
     Dosage: 37.5 MG/325 MG
     Route: 065
  8. TRAMADOL/PARACETAMOL [Suspect]
     Active Substance: ACETAMINOPHEN\TRAMADOL
     Indication: MUSCULOSKELETAL PAIN
     Route: 065
     Dates: start: 20140218, end: 20140220
  9. COKENZEN [Concomitant]
     Active Substance: CANDESARTAN CILEXETIL\HYDROCHLOROTHIAZIDE
     Indication: HYPERTENSION
     Dosage: 16MG/12.5 MG
     Route: 065
  10. SINGULAIR [Concomitant]
     Active Substance: MONTELUKAST SODIUM
     Indication: PRODUCT USED FOR UNKNOWN INDICATION
     Route: 065
  11. INIPOMP [Concomitant]
     Active Substance: PANTOPRAZOLE SODIUM
     Indication: STRESS
     Route: 065
  12. TRAMADOL/PARACETAMOL [Suspect]
     Active Substance: ACETAMINOPHEN\TRAMADOL
     Indication: ARTHRALGIA
     Dosage: 37.5 MG/325 MG
     Route: 065
  13. TARDYFERON [Suspect]
     Active Substance: FERROUS SULFATE\FOLIC ACID
     Indication: PRODUCT USED FOR UNKNOWN INDICATION
     Route: 065

REACTIONS (29)
  - Gait disturbance [Unknown]
  - Dyspnoea [Unknown]
  - Osteoarthritis [Unknown]
  - Constipation [Unknown]
  - Haematoma [Unknown]
  - Head injury [Unknown]
  - Vitamin D deficiency [Unknown]
  - Orthostatic hypotension [Unknown]
  - Arthralgia [Unknown]
  - Hypotension [Unknown]
  - Haemorrhage [Unknown]
  - Spondylolisthesis [Unknown]
  - Eating disorder [Unknown]
  - Aphasia [Unknown]
  - Amnesia [Not Recovered/Not Resolved]
  - Fall [Unknown]
  - Tendonitis [Unknown]
  - Asthma [Unknown]
  - Mobility decreased [Unknown]
  - Nervous system disorder [Unknown]
  - Tendon disorder [Unknown]
  - Pain in extremity [Unknown]
  - Rib fracture [Unknown]
  - Anaemia [Unknown]
  - Vertigo [Unknown]
  - Wound [Not Recovered/Not Resolved]
  - Food aversion [Unknown]
  - Influenza [Unknown]
  - Contusion [Unknown]

NARRATIVE: CASE EVENT DATE: 20131031
